FAERS Safety Report 14347026 (Version 4)
Quarter: 2018Q2

REPORT INFORMATION
  Report Type: Spontaneous
  Country: US (occurrence: US)
  Receive Date: 20180103
  Receipt Date: 20180521
  Transmission Date: 20180711
  Serious: Yes (Other)
  Sender: FDA-Public Use
  Company Number: US-PFIZER INC-2017040738

PATIENT
  Age: 81 Year
  Sex: Female
  Weight: 73.16 kg

DRUGS (2)
  1. XELJANZ [Suspect]
     Active Substance: TOFACITINIB CITRATE
     Indication: RHEUMATOID ARTHRITIS
     Dosage: 5 MG, 2X/DAY, [ONE IN THE MORNING AND ONE AT NIGHT]
     Route: 048
     Dates: start: 2013, end: 201701
  2. XELJANZ [Suspect]
     Active Substance: TOFACITINIB CITRATE
     Dosage: 5 MG, 2X/DAY, [ONE IN THE MORNING AND ONE AT NIGHT]
     Route: 048
     Dates: start: 2017

REACTIONS (5)
  - Fall [Recovering/Resolving]
  - Musculoskeletal pain [Unknown]
  - Patella fracture [Recovering/Resolving]
  - Pain [Unknown]
  - Pain in extremity [Unknown]

NARRATIVE: CASE EVENT DATE: 201712
